FAERS Safety Report 4946330-6 (Version None)
Quarter: 2006Q1

REPORT INFORMATION
  Report Type: 
  Country: None (occurrence: None)
  Receive Date: 20060316
  Receipt Date: 20060316
  Transmission Date: 20060701
  Serious: Yes (Hospitalization)
  Sender: FDA-Public Use
  Company Number: None

PATIENT
  Age: 75 Year
  Sex: Male
  Weight: 94.8 kg

DRUGS (2)
  1. BACTRIM DS [Suspect]
  2. ASPIRIN [Concomitant]

REACTIONS (1)
  - HYPERKALAEMIA [None]
